FAERS Safety Report 22231603 (Version 1)
Quarter: 2023Q2

REPORT INFORMATION
  Report Type: Spontaneous
  Country: US (occurrence: US)
  Receive Date: 20230420
  Receipt Date: 20230420
  Transmission Date: 20230722
  Serious: No
  Sender: FDA-Public Use
  Company Number: US-drreddys-LIT/USA/23/0162773

PATIENT
  Sex: Male

DRUGS (5)
  1. DIVALPROEX SODIUM [Suspect]
     Active Substance: DIVALPROEX SODIUM
     Indication: Drug withdrawal maintenance therapy
     Dosage: ADJUNCTIVE VALPROIC-ACID TAPER
  2. CHLORDIAZEPOXIDE [Suspect]
     Active Substance: CHLORDIAZEPOXIDE
     Indication: Drug withdrawal maintenance therapy
  3. ALPRAZOLAM [Concomitant]
     Active Substance: ALPRAZOLAM
     Indication: Drug withdrawal maintenance therapy
     Dosage: 6 NON-PRESCRIBED BARS/DAY
  4. HEROIN [Concomitant]
     Active Substance: DIAMORPHINE
     Indication: Product used for unknown indication
  5. HEROIN [Concomitant]
     Active Substance: DIAMORPHINE
     Dosage: RE-STARTED

REACTIONS (4)
  - Anxiety [Unknown]
  - Irritability [Unknown]
  - Insomnia [Unknown]
  - Drug ineffective for unapproved indication [Unknown]
